FAERS Safety Report 20700890 (Version 2)
Quarter: 2024Q2

REPORT INFORMATION
  Report Type: Spontaneous
  Country: US (occurrence: US)
  Receive Date: 20220412
  Receipt Date: 20240412
  Transmission Date: 20240716
  Serious: Yes (Other)
  Sender: FDA-Public Use
  Company Number: US-ASTELLAS-2022US005100

PATIENT
  Age: 75 Year
  Sex: Female

DRUGS (2)
  1. PROGRAF [Suspect]
     Active Substance: TACROLIMUS
     Indication: Renal transplant
     Dosage: 1 MG CAPSULE IN THE MORNING AND ONE 0.5 MG CAPSULE IN THE EVENING (OTHER)
     Route: 048
  2. PROGRAF [Suspect]
     Active Substance: TACROLIMUS
     Dosage: UNK, UNKNOWN FREQ.  (DOSAGE LOWERED)
     Route: 048

REACTIONS (5)
  - Pneumonia [Recovered/Resolved]
  - Chills [Recovered/Resolved]
  - Anaemia [Unknown]
  - Pain [Unknown]
  - Pyrexia [Recovered/Resolved]

NARRATIVE: CASE EVENT DATE: 19980101
